FAERS Safety Report 6665165-X (Version None)
Quarter: 2010Q2

REPORT INFORMATION
  Report Type: 
  Country: None (occurrence: None)
  Receive Date: 20100402
  Receipt Date: 20100325
  Transmission Date: 20101027
  Serious: Yes (Other)
  Sender: FDA-Public Use
  Company Number: US-BRISTOL-MYERS SQUIBB COMPANY-15035611

PATIENT
  Age: 62 Year
  Sex: Female
  Weight: 86 kg

DRUGS (3)
  1. ONGLYZA [Suspect]
     Indication: TYPE 2 DIABETES MELLITUS
     Dosage: STARTED 6 WEEKS AGO.
  2. ATIVAN [Concomitant]
  3. COMBIVENT [Concomitant]

REACTIONS (2)
  - BLUE TOE SYNDROME [None]
  - PERIPHERAL COLDNESS [None]
